FAERS Safety Report 5196039-1 (Version None)
Quarter: 2007Q1

REPORT INFORMATION
  Report Type: 
  Country: None (occurrence: None)
  Receive Date: 20070102
  Receipt Date: 20061219
  Transmission Date: 20070707
  Serious: Yes (Disabling, Other)
  Sender: FDA-Public Use
  Company Number: US-PURDUE-USA_2006_0026046

PATIENT
  Age: 61 Year
  Sex: Male

DRUGS (2)
  1. MORPHINE SULFATE [Suspect]
     Indication: PAIN
     Dosage: 2 MG/ML, SEE TEXT
  2. MORPHINE SULFATE [Suspect]
     Dosage: 50 MG/ML, SEE TEXT

REACTIONS (16)
  - BACK PAIN [None]
  - BACTERIAL INFECTION [None]
  - BALANCE DISORDER [None]
  - BREAKTHROUGH PAIN [None]
  - CATHETER RELATED COMPLICATION [None]
  - FALL [None]
  - FIBROSIS [None]
  - FOREIGN BODY TRAUMA [None]
  - GRANULOMA [None]
  - GROIN PAIN [None]
  - INFLAMMATION [None]
  - LYMPHOCYTIC INFILTRATION [None]
  - NECROSIS [None]
  - PARAESTHESIA [None]
  - PARAPARESIS [None]
  - SENSORY DISTURBANCE [None]
